FAERS Safety Report 25201205 (Version 3)
Quarter: 2025Q2

REPORT INFORMATION
  Report Type: Spontaneous
  Country: US (occurrence: US)
  Receive Date: 20250416
  Receipt Date: 20250503
  Transmission Date: 20250717
  Serious: No
  Sender: NOVARTIS
  Company Number: US-002147023-NVSC2025US062211

PATIENT
  Sex: Female

DRUGS (1)
  1. COSENTYX [Suspect]
     Active Substance: SECUKINUMAB
     Indication: Product used for unknown indication
     Dosage: UNK, QW (150MG/ML X2)
     Route: 065

REACTIONS (5)
  - Device malfunction [Unknown]
  - Needle issue [Unknown]
  - Device issue [Unknown]
  - Incorrect dose administered by device [Unknown]
  - Device difficult to use [Unknown]
